FAERS Safety Report 14790706 (Version 1)
Quarter: 2018Q2

REPORT INFORMATION
  Report Type: Spontaneous
  Country: US (occurrence: US)
  Receive Date: 20180423
  Receipt Date: 20180423
  Transmission Date: 20180711
  Serious: No
  Sender: FDA-Public Use
  Company Number: US-BAYER-2018-073708

PATIENT
  Age: 41 Year
  Sex: Female

DRUGS (1)
  1. ADEMPAS [Suspect]
     Active Substance: RIOCIGUAT
     Indication: PULMONARY ARTERIAL HYPERTENSION
     Dosage: 1.5 MG, TID

REACTIONS (5)
  - Neuralgia [None]
  - Gastric disorder [None]
  - Malaise [Recovering/Resolving]
  - Arthralgia [None]
  - Device battery issue [None]
